FAERS Safety Report 12363542 (Version 1)
Quarter: 2016Q2

REPORT INFORMATION
  Report Type: Spontaneous
  Country: US (occurrence: None)
  Receive Date: 20160512
  Receipt Date: 20160512
  Transmission Date: 20160815
  Serious: No
  Sender: FDA-Public Use
  Company Number: None

PATIENT
  Age: 49 Year
  Sex: Male

DRUGS (1)
  1. ENBREL [Suspect]
     Active Substance: ETANERCEPT
     Indication: PSORIATIC ARTHROPATHY
     Dosage: 50MG/ML ONCE A WEEK SUBCUTANEOUSLY
     Route: 058
     Dates: start: 20160126

REACTIONS (3)
  - Dizziness [None]
  - Dyspnoea [None]
  - Constipation [None]

NARRATIVE: CASE EVENT DATE: 20160126
